FAERS Safety Report 5769607-3 (Version None)
Quarter: 2008Q2

REPORT INFORMATION
  Report Type: 
  Country: None (occurrence: None)
  Receive Date: 20080612
  Receipt Date: 20080401
  Transmission Date: 20081010
  Serious: No
  Sender: FDA-Public Use
  Company Number: US-ABBOTT-08P-163-0445397-00

PATIENT
  Sex: Female
  Weight: 49.94 kg

DRUGS (3)
  1. HUMIRA [Suspect]
     Indication: PSORIASIS
     Route: 058
     Dates: start: 20080316
  2. VENLAFAXINE HCL [Concomitant]
     Indication: ANXIETY
     Route: 048
  3. CYANOCOBALAMIN [Concomitant]
     Indication: ANAEMIA
     Route: 050

REACTIONS (1)
  - INJECTION SITE IRRITATION [None]
